FAERS Safety Report 6457709 (Version 4)
Quarter: 2020Q1

REPORT INFORMATION
  Report Type: Report from Study
  Country: JP (occurrence: JP)
  Receive Date: 20071102
  Receipt Date: 20200116
  Transmission Date: 20200409
  Serious: Yes (Death, Life-Threatening, Hospitalization, Other)
  Sender: FDA-Public Use
  Company Number: PHHO2007JP00771

PATIENT
  Age: 61 Year
  Sex: Male
  Weight: 66 kg

DRUGS (43)
  1. TASIGNA [Suspect]
     Active Substance: NILOTINIB
     Dosage: 800 MG, QD
     Route: 048
     Dates: start: 20061101, end: 20061101
  2. TASIGNA [Suspect]
     Active Substance: NILOTINIB
     Dosage: 400 MG, QD
     Route: 048
     Dates: start: 20070125, end: 20070228
  3. TASIGNA [Suspect]
     Active Substance: NILOTINIB
     Dosage: 200 MG, QD
     Route: 048
     Dates: start: 20070526, end: 20070527
  4. XYLOCAINE [Concomitant]
     Active Substance: LIDOCAINE HYDROCHLORIDE
     Indication: PAIN
     Route: 065
  5. POVIDONE-IODINE. [Concomitant]
     Active Substance: POVIDONE-IODINE
     Indication: ANAESTHESIA
     Route: 065
  6. TASIGNA [Suspect]
     Active Substance: NILOTINIB
     Dosage: NO TREATMENT
     Route: 048
     Dates: start: 20070528, end: 20070602
  7. PHYSISALZ [Concomitant]
     Indication: PRODUCT USED FOR UNKNOWN INDICATION
     Route: 065
  8. LACTEC [Concomitant]
     Active Substance: CALCIUM CHLORIDE ANHYDROUS\POTASSIUM CHLORIDE\SODIUM CHLORIDE\SODIUM LACTATE
     Indication: PRODUCT USED FOR UNKNOWN INDICATION
     Dosage: UNK
     Route: 065
  9. PURSENNID [Concomitant]
     Indication: PRODUCT USED FOR UNKNOWN INDICATION
     Route: 065
  10. MEYLON [Concomitant]
     Active Substance: SODIUM BICARBONATE
     Indication: PRODUCT USED FOR UNKNOWN INDICATION
     Route: 065
  11. TASIGNA [Suspect]
     Active Substance: NILOTINIB
     Dosage: 400 MG
     Route: 048
     Dates: start: 20061102, end: 20061102
  12. TASIGNA [Suspect]
     Active Substance: NILOTINIB
     Dosage: NO TREATMENT
     Route: 048
     Dates: start: 20061207, end: 20061220
  13. TASIGNA [Suspect]
     Active Substance: NILOTINIB
     Dosage: NO TREATMENT
     Route: 048
     Dates: start: 20070108, end: 20070124
  14. TASIGNA [Suspect]
     Active Substance: NILOTINIB
     Dosage: 400 MG, QD
     Route: 048
     Dates: start: 20070307, end: 20070424
  15. TASIGNA [Suspect]
     Active Substance: NILOTINIB
     Dosage: NO TREATMENT
     Route: 065
     Dates: start: 20070425, end: 20070502
  16. MEVALOTIN [Concomitant]
     Active Substance: PRAVASTATIN SODIUM
     Indication: PRODUCT USED FOR UNKNOWN INDICATION
     Route: 065
  17. ALOSITOL [Concomitant]
     Active Substance: ALLOPURINOL
     Indication: PRODUCT USED FOR UNKNOWN INDICATION
     Route: 065
  18. DIFLUCAN [Concomitant]
     Active Substance: FLUCONAZOLE
     Indication: PRODUCT USED FOR UNKNOWN INDICATION
     Route: 065
  19. TASIGNA [Suspect]
     Active Substance: NILOTINIB
     Dosage: NO TREATMENT
     Route: 048
     Dates: start: 20061103, end: 20061103
  20. TASIGNA [Suspect]
     Active Substance: NILOTINIB
     Dosage: NO TREATMENT
     Route: 048
     Dates: start: 20070517, end: 20070525
  21. TASIGNA [Suspect]
     Active Substance: NILOTINIB
     Dosage: 200 MG, QD
     Route: 048
     Dates: start: 20070603, end: 20070606
  22. MUCOSTA [Concomitant]
     Active Substance: REBAMIPIDE
     Indication: PROPHYLAXIS
     Route: 065
  23. SELTOUCH [Concomitant]
     Active Substance: FELBINAC
     Indication: BACK PAIN
     Route: 065
  24. RENIVACE [Concomitant]
     Active Substance: ENALAPRIL
     Indication: PRODUCT USED FOR UNKNOWN INDICATION
     Route: 065
  25. TASIGNA [Suspect]
     Active Substance: NILOTINIB
     Dosage: UNK
     Route: 048
     Dates: start: 20070503, end: 20070516
  26. OMNIPAQUE ^ADCOCK INGRAM^ [Concomitant]
     Indication: PRODUCT USED FOR UNKNOWN INDICATION
     Route: 065
  27. PANTOSIN [Concomitant]
     Active Substance: PANTETHINE
     Indication: PRODUCT USED FOR UNKNOWN INDICATION
     Route: 065
  28. TASIGNA [Suspect]
     Active Substance: NILOTINIB
     Dosage: 400 MG, QD
     Route: 048
     Dates: start: 20061221, end: 20070107
  29. MS REISHIPPU ASTRA [Concomitant]
     Indication: BACK PAIN
     Route: 065
  30. LOXONIN [Concomitant]
     Active Substance: LOXOPROFEN SODIUM
     Indication: PRODUCT USED FOR UNKNOWN INDICATION
     Route: 065
  31. ONCOVIN [Concomitant]
     Active Substance: VINCRISTINE SULFATE
     Indication: PRODUCT USED FOR UNKNOWN INDICATION
     Route: 065
  32. PAZUFLOXACIN [Concomitant]
     Active Substance: PAZUFLOXACIN
     Indication: PRODUCT USED FOR UNKNOWN INDICATION
     Route: 065
  33. SOLITA T [Concomitant]
     Indication: PRODUCT USED FOR UNKNOWN INDICATION
     Route: 065
  34. TASIGNA [Suspect]
     Active Substance: NILOTINIB
     Indication: CHRONIC MYELOID LEUKAEMIA
     Dosage: 400 MG, QD
     Route: 048
     Dates: start: 20061031, end: 20061031
  35. TASIGNA [Suspect]
     Active Substance: NILOTINIB
     Dosage: NO TREATMENT
     Route: 048
     Dates: start: 20070301, end: 20070306
  36. ATARAX [Concomitant]
     Active Substance: HYDROXYZINE HYDROCHLORIDE
     Indication: NEUROTOXICITY
     Route: 065
  37. KN SOL. 3B [Concomitant]
     Active Substance: DEXTROSE\POTASSIUM CHLORIDE\SODIUM CHLORIDE\SODIUM LACTATE
     Indication: PRODUCT USED FOR UNKNOWN INDICATION
     Route: 065
  38. TASIGNA [Suspect]
     Active Substance: NILOTINIB
     Dosage: 400 MG, QD
     Route: 048
     Dates: start: 20061104, end: 20061206
  39. BAYASPIRIN [Concomitant]
     Active Substance: ASPIRIN
     Indication: PRODUCT USED FOR UNKNOWN INDICATION
     Route: 065
  40. GASTER [Concomitant]
     Active Substance: FAMOTIDINE
     Indication: PRODUCT USED FOR UNKNOWN INDICATION
     Route: 065
  41. LECICARBON [Concomitant]
     Active Substance: SODIUM BICARBONATE\SODIUM PHOSPHATE, MONOBASIC
     Indication: PRODUCT USED FOR UNKNOWN INDICATION
     Route: 065
  42. MAGNESIUM OXIDE. [Concomitant]
     Active Substance: MAGNESIUM OXIDE
     Indication: PRODUCT USED FOR UNKNOWN INDICATION
     Route: 065
  43. KYTRIL [Concomitant]
     Active Substance: GRANISETRON HYDROCHLORIDE
     Indication: PRODUCT USED FOR UNKNOWN INDICATION
     Route: 065

REACTIONS (11)
  - Myocardial infarction [Recovering/Resolving]
  - Epistaxis [Unknown]
  - Shunt malfunction [Recovering/Resolving]
  - Neutropenia [Recovered/Resolved]
  - Pyrexia [Recovered/Resolved]
  - Blast crisis in myelogenous leukaemia [Fatal]
  - Muscular weakness [Recovering/Resolving]
  - Pneumonia [Recovered/Resolved]
  - Cardiac failure [Recovering/Resolving]
  - Pneumonia [Recovering/Resolving]
  - Concomitant disease progression [Recovered/Resolved]

NARRATIVE: CASE EVENT DATE: 20070106
